FAERS Safety Report 22078928 (Version 1)
Quarter: 2023Q1

REPORT INFORMATION
  Report Type: Spontaneous
  Country: GR (occurrence: GR)
  Receive Date: 20230309
  Receipt Date: 20230309
  Transmission Date: 20230418
  Serious: No
  Sender: FDA-Public Use
  Company Number: GR-PFIZER INC-PV202200121500

PATIENT
  Sex: Male

DRUGS (1)
  1. CAVERJECT [Suspect]
     Active Substance: ALPROSTADIL
     Dosage: UNK

REACTIONS (5)
  - Drug ineffective [Unknown]
  - Product physical issue [Unknown]
  - Product solubility abnormal [Unknown]
  - Device breakage [Unknown]
  - Drug dose omission by device [Unknown]
